FAERS Safety Report 18388033 (Version 3)
Quarter: 2020Q4

REPORT INFORMATION
  Report Type: Spontaneous
  Country: US (occurrence: US)
  Receive Date: 20201015
  Receipt Date: 20201222
  Transmission Date: 20210114
  Serious: Yes (Other)
  Sender: FDA-Public Use
  Company Number: US-RECKITT BENCKISER HEALTHCARE INT LIMITED-RB-94399-2020

PATIENT
  Age: 36 Year
  Sex: Male

DRUGS (1)
  1. DELSYM [Suspect]
     Active Substance: DEXTROMETHORPHAN
     Indication: PRODUCT USED FOR UNKNOWN INDICATION
     Dosage: TOOK MORE THAN 20 MILLILITRE, QD
     Route: 065
     Dates: start: 20201006

REACTIONS (3)
  - Somnolence [Recovering/Resolving]
  - Fatigue [Recovering/Resolving]
  - Accidental overdose [Recovering/Resolving]

NARRATIVE: CASE EVENT DATE: 20201006
